FAERS Safety Report 8179803-6 (Version None)
Quarter: 2012Q1

REPORT INFORMATION
  Report Type: 
  Country: None (occurrence: None)
  Receive Date: 20120302
  Receipt Date: 20120221
  Transmission Date: 20120608
  Serious: Yes (Hospitalization, Disabling)
  Sender: FDA-Public Use
  Company Number: US-BAYER-2012-018500

PATIENT
  Age: 18 Year
  Sex: Female
  Weight: 53.9 kg

DRUGS (1)
  1. YASMIN [Suspect]
     Indication: ACNE
     Dosage: UNK
     Route: 048
     Dates: start: 20090801

REACTIONS (1)
  - CEREBRAL HAEMORRHAGE [None]
